FAERS Safety Report 7402395-3 (Version None)
Quarter: 2011Q2

REPORT INFORMATION
  Report Type: 
  Country: None (occurrence: None)
  Receive Date: 20110408
  Receipt Date: 20110328
  Transmission Date: 20111010
  Serious: Yes (Life-Threatening, Other)
  Sender: FDA-Public Use
  Company Number: BR-NOVOPROD-325852

PATIENT
  Age: 60 Year
  Sex: Female

DRUGS (1)
  1. PROTAPHANE [Suspect]
     Indication: PRODUCT USED FOR UNKNOWN INDICATION
     Route: 065

REACTIONS (2)
  - ROAD TRAFFIC ACCIDENT [None]
  - CEREBROVASCULAR ACCIDENT [None]
